FAERS Safety Report 8781371 (Version 1)
Quarter: 2012Q4

REPORT INFORMATION
  Report Type: 
  Country: US (occurrence: US)
  Receive Date: 20120913
  Receipt Date: 20120913
  Transmission Date: 20130627
  Serious: No
  Sender: FDA-Public Use
  Company Number: US-VERTEX PHARMACEUTICAL INC.-AE-2012-007109

PATIENT
  Age: 56 None
  Sex: Male
  Weight: 79.55 kg

DRUGS (13)
  1. INCIVEK [Suspect]
     Indication: HEPATITIS C
     Route: 048
     Dates: start: 20120511
  2. PEGINTRON [Concomitant]
     Indication: HEPATITIS C
     Route: 058
     Dates: start: 20120511
  3. RIBAVIRIN [Concomitant]
     Indication: HEPATITIS C
     Route: 048
     Dates: start: 20120511
  4. RIBAVIRIN [Concomitant]
  5. HYDROCODONE/APAP [Concomitant]
     Indication: CHEST PAIN
     Route: 048
  6. LISINOPRIL [Concomitant]
     Indication: HYPERTENSION
     Route: 048
  7. PAROXETINE [Concomitant]
     Indication: DEPRESSION
     Route: 048
  8. BUPROPION [Concomitant]
     Indication: DEPRESSION
     Route: 048
  9. FLEXERIL [Concomitant]
     Indication: CHEST PAIN
     Route: 048
  10. AMBIEN [Concomitant]
     Route: 048
  11. GABAPENTIN [Concomitant]
     Indication: CHEST PAIN
  12. WELLBUTRIN [Concomitant]
  13. XANAX [Concomitant]

REACTIONS (10)
  - Dyspnoea [Not Recovered/Not Resolved]
  - Influenza like illness [Not Recovered/Not Resolved]
  - Dizziness [Not Recovered/Not Resolved]
  - Oral pain [Not Recovered/Not Resolved]
  - Toothache [Not Recovered/Not Resolved]
  - Vision blurred [Not Recovered/Not Resolved]
  - Muscular weakness [Not Recovered/Not Resolved]
  - Fatigue [Not Recovered/Not Resolved]
  - Nausea [Not Recovered/Not Resolved]
  - Anaemia [Not Recovered/Not Resolved]
